FAERS Safety Report 11418936 (Version 1)
Quarter: 2015Q3

REPORT INFORMATION
  Report Type: Spontaneous
  Country: US (occurrence: None)
  Receive Date: 20150824
  Receipt Date: 20150824
  Transmission Date: 20151125
  Serious: Yes (Hospitalization, Other)
  Sender: FDA-Public Use
  Company Number: ADR-2015-01605

PATIENT
  Age: 68 Year
  Sex: Female

DRUGS (1)
  1. BACLOFEN INTRATHECAL [Suspect]
     Active Substance: BACLOFEN

REACTIONS (3)
  - Muscle spasms [None]
  - Nervous system disorder [None]
  - Therapeutic response unexpected [None]

NARRATIVE: CASE EVENT DATE: 20140829
